FAERS Safety Report 16377049 (Version 1)
Quarter: 2019Q2

REPORT INFORMATION
  Report Type: Spontaneous
  Country: US (occurrence: US)
  Receive Date: 20190531
  Receipt Date: 20190531
  Transmission Date: 20190711
  Serious: Yes (Hospitalization, Other)
  Sender: FDA-Public Use
  Company Number: US-PFIZER INC-2019229634

PATIENT
  Age: 76 Year
  Sex: Female
  Weight: 52.61 kg

DRUGS (1)
  1. TIKOSYN [Suspect]
     Active Substance: DOFETILIDE
     Indication: ATRIAL FIBRILLATION
     Dosage: 250 UG, 2X/DAY
     Route: 048

REACTIONS (3)
  - Off label use [Unknown]
  - Ventricular tachycardia [Recovering/Resolving]
  - Product use in unapproved indication [Unknown]
